FAERS Safety Report 10411989 (Version 1)
Quarter: 2014Q3

REPORT INFORMATION
  Report Type: Spontaneous
  Country: CA (occurrence: CA)
  Receive Date: 20140827
  Receipt Date: 20140827
  Transmission Date: 20150326
  Serious: Yes (Hospitalization)
  Sender: FDA-Public Use
  Company Number: PHHY2014CA105267

PATIENT
  Sex: Female

DRUGS (5)
  1. CREON [Concomitant]
     Active Substance: PANCRELIPASE AMYLASE\PANCRELIPASE LIPASE\PANCRELIPASE PROTEASE
     Dosage: UKN
  2. PULMOZYME [Concomitant]
     Active Substance: DORNASE ALFA
     Dosage: UKN
  3. HYPERTONIC SALINE SOLUTION [Concomitant]
     Active Substance: SODIUM CHLORIDE
     Dosage: UKN
  4. KALYDECO [Concomitant]
     Active Substance: IVACAFTOR
     Dosage: UKN
  5. TOBI [Suspect]
     Active Substance: TOBRAMYCIN
     Dosage: UKN
     Route: 055

REACTIONS (3)
  - Respiratory tract infection [Unknown]
  - Stenotrophomonas infection [Unknown]
  - Pseudomonas infection [Unknown]
